FAERS Safety Report 5242835-1 (Version None)
Quarter: 2007Q1

REPORT INFORMATION
  Report Type: 
  Country: None (occurrence: None)
  Receive Date: 20070221
  Receipt Date: 20070215
  Transmission Date: 20070707
  Serious: Yes (Death, Hospitalization)
  Sender: FDA-Public Use
  Company Number: US-MERCK-0702USA01349

PATIENT
  Age: 58 Year
  Sex: Male

DRUGS (4)
  1. JANUVIA [Suspect]
     Indication: DIABETES MELLITUS
     Route: 048
     Dates: start: 20061108
  2. AVANDIA [Concomitant]
     Route: 065
  3. METFORMIN [Concomitant]
     Route: 065
  4. GLYBURIDE [Concomitant]
     Route: 065

REACTIONS (5)
  - DEATH [None]
  - EJECTION FRACTION DECREASED [None]
  - MYOCARDIAL INFARCTION [None]
  - REFUSAL OF TREATMENT BY PATIENT [None]
  - RENAL FAILURE ACUTE [None]
